FAERS Safety Report 24445069 (Version 1)
Quarter: 2024Q4

REPORT INFORMATION
  Report Type: Spontaneous
  Country: US (occurrence: US)
  Receive Date: 20241016
  Receipt Date: 20241016
  Transmission Date: 20250115
  Serious: No
  Sender: SANDOZ
  Company Number: US-002147023-NVSC2024US030978

PATIENT
  Sex: Female
  Weight: 74.83 kg

DRUGS (1)
  1. COMBIPATCH [Suspect]
     Active Substance: ESTRADIOL\NORETHINDRONE ACETATE
     Indication: Hot flush
     Dosage: UNK (0.05/0.14 MG)
     Route: 062
     Dates: end: 202401

REACTIONS (9)
  - Application site discolouration [Not Recovered/Not Resolved]
  - Application site exfoliation [Unknown]
  - Application site irritation [Unknown]
  - Application site pruritus [Unknown]
  - Application site pain [Unknown]
  - Application site erythema [Unknown]
  - Application site vesicles [Unknown]
  - Device issue [Unknown]
  - Off label use [Unknown]
